FAERS Safety Report 9734584 (Version 2)
Quarter: 2013Q4

REPORT INFORMATION
  Report Type: Spontaneous
  Country: BG (occurrence: BG)
  Receive Date: 20131206
  Receipt Date: 20131227
  Transmission Date: 20140711
  Serious: Yes (Hospitalization, Other)
  Sender: FDA-Public Use
  Company Number: BG-AMGEN-BGRSP2013084427

PATIENT
  Sex: Female

DRUGS (3)
  1. PROLIA [Suspect]
     Indication: PROPHYLAXIS
     Dosage: 60 MG, Q6MO
     Route: 065
  2. CALCIUM CARBONATE [Concomitant]
     Dosage: 600 MG, TID
  3. VIGANTOL                           /00318501/ [Concomitant]

REACTIONS (2)
  - Cholelithiasis [Recovered/Resolved]
  - Blood cholesterol increased [Unknown]
